FAERS Safety Report 5694681-2 (Version None)
Quarter: 2008Q2

REPORT INFORMATION
  Report Type: 
  Country: None (occurrence: None)
  Receive Date: 20080404
  Receipt Date: 20080401
  Transmission Date: 20081010
  Serious: Yes (Other)
  Sender: FDA-Public Use
  Company Number: B0361216A

PATIENT
  Sex: Female

DRUGS (1)
  1. PAROXETINE HCL [Suspect]
     Indication: DEPRESSION
     Route: 065
     Dates: start: 20001201

REACTIONS (10)
  - DEPRESSED MOOD [None]
  - DEPRESSION [None]
  - NAUSEA [None]
  - PARAESTHESIA [None]
  - PSYCHOTIC BEHAVIOUR [None]
  - SUICIDAL IDEATION [None]
  - TEARFULNESS [None]
  - THINKING ABNORMAL [None]
  - VISION BLURRED [None]
  - WITHDRAWAL SYNDROME [None]
